FAERS Safety Report 7098371-3 (Version None)
Quarter: 2010Q4

REPORT INFORMATION
  Report Type: 
  Country: None (occurrence: None)
  Receive Date: 20101112
  Receipt Date: 20101103
  Transmission Date: 20110411
  Serious: No
  Sender: FDA-Public Use
  Company Number: US-PFIZER INC-2010140355

PATIENT
  Sex: Female
  Weight: 67 kg

DRUGS (5)
  1. LIPITOR [Suspect]
     Dosage: 10 MG, UNK
     Dates: start: 20101001
  2. HYDROCHLOROTHIAZIDE [Suspect]
     Dosage: 25 MG, DAILY
     Route: 048
     Dates: start: 20040201
  3. PROZAC [Concomitant]
     Dosage: 20 MG, DAILY
     Route: 048
  4. BENADRYL [Concomitant]
  5. TESTOSTERONE [Concomitant]

REACTIONS (4)
  - DIZZINESS [None]
  - FATIGUE [None]
  - MALAISE [None]
  - SOMNOLENCE [None]
